FAERS Safety Report 23508414 (Version 2)
Quarter: 2024Q1

REPORT INFORMATION
  Report Type: Spontaneous
  Country: BR (occurrence: BR)
  Receive Date: 20240209
  Receipt Date: 20240214
  Transmission Date: 20240409
  Serious: Yes (Other)
  Sender: FDA-Public Use
  Company Number: BR-BAXTER-2024BAX012521

PATIENT
  Age: 32 Year
  Sex: Female
  Weight: 57.2 kg

DRUGS (2)
  1. IRON [Suspect]
     Active Substance: IRON
     Indication: Anaemia
     Dosage: 200 MG DILUTED IN 250 ML OF SALINE SOLUTION, UNSPECIFIED FREQUENCY
     Route: 042
     Dates: start: 20240126, end: 20240202
  2. SODIUM CHLORIDE [Suspect]
     Active Substance: SODIUM CHLORIDE
     Indication: Medication dilution
     Dosage: 250 ML SALINE SOLUTION FOR DILUTING 200 MG SUCROFER, UNSPECIFIED FREQUENCY
     Route: 042
     Dates: start: 20240126, end: 20240202

REACTIONS (3)
  - Rash [Recovered/Resolved]
  - Pruritus [Recovered/Resolved]
  - Maternal exposure during pregnancy [Unknown]

NARRATIVE: CASE EVENT DATE: 20240126
